FAERS Safety Report 7015690-7 (Version None)
Quarter: 2010Q3

REPORT INFORMATION
  Report Type: 
  Country: None (occurrence: None)
  Receive Date: 20100927
  Receipt Date: 20100311
  Transmission Date: 20110219
  Serious: No
  Sender: FDA-Public Use
  Company Number: US-ASTRAZENECA-2010SE10675

PATIENT
  Age: 86 Year
  Sex: Female

DRUGS (1)
  1. ARIMIDEX [Suspect]
     Indication: BREAST CANCER
     Route: 048
     Dates: start: 20080101

REACTIONS (5)
  - BREAST DISCOLOURATION [None]
  - BREAST SWELLING [None]
  - DRUG INEFFECTIVE [None]
  - HYPOAESTHESIA [None]
  - RASH [None]
